FAERS Safety Report 7167967-2 (Version None)
Quarter: 2010Q4

REPORT INFORMATION
  Report Type: 
  Country: None (occurrence: None)
  Receive Date: 20101216
  Receipt Date: 20101213
  Transmission Date: 20110411
  Serious: Yes (Other)
  Sender: FDA-Public Use
  Company Number: US-PFIZER INC-2010124754

PATIENT
  Sex: Female

DRUGS (2)
  1. LIPITOR [Suspect]
     Dosage: 20 MG,
  2. LIPITOR [Suspect]
     Dosage: 40 MG, DAILY
     Dates: start: 20090201

REACTIONS (1)
  - NEUROPATHY PERIPHERAL [None]
